FAERS Safety Report 18786903 (Version 2)
Quarter: 2021Q2

REPORT INFORMATION
  Report Type: Spontaneous
  Country: DE (occurrence: DE)
  Receive Date: 20210126
  Receipt Date: 20210407
  Transmission Date: 20210717
  Serious: Yes (Other)
  Sender: FDA-Public Use
  Company Number: DE-DRREDDYS-GER/GER/21/0131136

PATIENT
  Age: 1 Day
  Sex: Female
  Weight: 2.16 kg

DRUGS (3)
  1. ASPIRIN. [Concomitant]
     Active Substance: ASPIRIN
     Indication: PROPHYLAXIS
     Dosage: 150 [MG/D ]
     Route: 064
  2. L?THYROXIN [Concomitant]
     Active Substance: LEVOTHYROXINE SODIUM
     Indication: HYPOTHYROIDISM
     Dosage: 100 [MCG/D ]/ ALTERNATING 88 AND 100 MCG/D
     Route: 064
  3. QUETIAPINE. [Suspect]
     Active Substance: QUETIAPINE
     Indication: BIPOLAR DISORDER
     Dosage: 300 [MG/D ]
     Route: 064
     Dates: start: 20190620, end: 20200305

REACTIONS (3)
  - Small for dates baby [Recovered/Resolved]
  - Microcephaly [Unknown]
  - Foetal exposure during pregnancy [Unknown]

NARRATIVE: CASE EVENT DATE: 20200305
